FAERS Safety Report 9772947 (Version 1)
Quarter: 2013Q4

REPORT INFORMATION
  Report Type: Spontaneous
  Country: US (occurrence: US)
  Receive Date: 20131219
  Receipt Date: 20131219
  Transmission Date: 20140711
  Serious: No
  Sender: FDA-Public Use
  Company Number: US-MYLANLABS-2012S1025842

PATIENT
  Age: 62 Year
  Sex: Female
  Weight: 74.84 kg

DRUGS (2)
  1. PROPRANOLOL HYDROCHLORIDE [Suspect]
     Indication: HYPERTENSION
     Route: 048
     Dates: start: 20121206, end: 20121208
  2. ATIVAN [Concomitant]

REACTIONS (2)
  - Vulvovaginal burning sensation [Recovering/Resolving]
  - Dysuria [Recovering/Resolving]
